FAERS Safety Report 15251452 (Version 2)
Quarter: 2018Q4

REPORT INFORMATION
  Report Type: Report from Study
  Country: PR (occurrence: PR)
  Receive Date: 20180807
  Receipt Date: 20181010
  Transmission Date: 20190204
  Serious: No
  Sender: FDA-Public Use
  Company Number: US-AMGEN-USASL2018104569

PATIENT
  Age: 48 Year
  Sex: Female

DRUGS (1)
  1. ENBREL [Suspect]
     Active Substance: ETANERCEPT
     Indication: RHEUMATOID ARTHRITIS
     Dosage: 50 MG, QWK
     Route: 065
     Dates: end: 20180921

REACTIONS (5)
  - Erythema [Unknown]
  - Eye pain [Unknown]
  - Erythema of eyelid [Unknown]
  - Eyelids pruritus [Unknown]
  - Pruritus [Unknown]

NARRATIVE: CASE EVENT DATE: 201807
